FAERS Safety Report 23703362 (Version 2)
Quarter: 2024Q2

REPORT INFORMATION
  Report Type: Report from Study
  Country: IT (occurrence: None)
  Receive Date: 20240403
  Receipt Date: 20240405
  Transmission Date: 20240716
  Serious: Yes (Hospitalization)
  Sender: FDA-Public Use
  Company Number: 2023A197006

PATIENT
  Age: 72 Year
  Sex: Male
  Weight: 85 kg

DRUGS (3)
  1. DURVALUMAB [Suspect]
     Active Substance: DURVALUMAB
     Indication: Biliary neoplasm
     Route: 042
     Dates: start: 20230619
  2. GEMCITABINE [Suspect]
     Active Substance: GEMCITABINE
     Indication: Biliary neoplasm
     Route: 042
     Dates: start: 20230515
  3. CISPLATIN [Suspect]
     Active Substance: CISPLATIN
     Indication: Biliary neoplasm
     Route: 042
     Dates: start: 20230515

REACTIONS (3)
  - Urinary tract infection [Recovered/Resolved]
  - Cholangitis [Not Recovered/Not Resolved]
  - Cholecystic intraepithelial neoplasia [Unknown]

NARRATIVE: CASE EVENT DATE: 20230803
